FAERS Safety Report 7148643-9 (Version None)
Quarter: 2010Q4

REPORT INFORMATION
  Report Type: 
  Country: None (occurrence: None)
  Receive Date: 20101209
  Receipt Date: 20101130
  Transmission Date: 20110411
  Serious: Yes (Hospitalization)
  Sender: FDA-Public Use
  Company Number: US-US-EMD SERONO, INC.-7026753

PATIENT
  Sex: Female

DRUGS (3)
  1. REBIF [Suspect]
     Indication: MULTIPLE SCLEROSIS
     Route: 058
     Dates: start: 20090420
  2. REBIF [Suspect]
     Route: 058
     Dates: start: 20090501, end: 20090901
  3. REBIF [Suspect]
     Route: 058
     Dates: start: 20091028

REACTIONS (1)
  - CHOLELITHIASIS [None]
